FAERS Safety Report 7585101-1 (Version None)
Quarter: 2011Q3

REPORT INFORMATION
  Report Type: 
  Country: None (occurrence: None)
  Receive Date: 20110701
  Receipt Date: 20110627
  Transmission Date: 20111222
  Serious: Yes (Other)
  Sender: FDA-Public Use
  Company Number: US-BRISTOL-MYERS SQUIBB COMPANY-15857980

PATIENT
  Age: 54 Year
  Sex: Female

DRUGS (1)
  1. ERBITUX [Suspect]

REACTIONS (3)
  - MIGRAINE [None]
  - VOMITING [None]
  - PYREXIA [None]
